FAERS Safety Report 4331197-X (Version None)
Quarter: 2004Q1

REPORT INFORMATION
  Report Type: 
  Country: None (occurrence: None)
  Receive Date: 20040331
  Receipt Date: 20040315
  Transmission Date: 20041129
  Serious: Yes (Hospitalization)
  Sender: FDA-Public Use
  Company Number: 2004AP00108

PATIENT
  Age: 59 Year
  Sex: Male

DRUGS (6)
  1. IRESSA [Suspect]
     Indication: LUNG ADENOCARCINOMA
     Dosage: 250 MG DAILY PO
     Route: 048
     Dates: start: 20031115, end: 20031226
  2. IRESSA [Suspect]
     Indication: NON-SMALL CELL LUNG CANCER RECURRENT
     Dosage: 250 MG DAILY PO
     Route: 048
     Dates: start: 20031115, end: 20031226
  3. CARBOPLATIN [Concomitant]
  4. TAXOL [Concomitant]
  5. NAVELBINE [Concomitant]
  6. GEMZAR [Concomitant]

REACTIONS (8)
  - ARTHRALGIA [None]
  - BRONCHITIS ACUTE [None]
  - CARCINOEMBRYONIC ANTIGEN INCREASED [None]
  - COUGH [None]
  - DRUG INEFFECTIVE [None]
  - METASTASES TO BONE [None]
  - PHARYNGOLARYNGEAL PAIN [None]
  - VIRAL INFECTION [None]
